FAERS Safety Report 10518573 (Version 5)
Quarter: 2016Q3

REPORT INFORMATION
  Report Type: Report from Study
  Country: GB (occurrence: GB)
  Receive Date: 20141015
  Receipt Date: 20160707
  Transmission Date: 20161109
  Serious: Yes (Hospitalization, Other)
  Sender: FDA-Public Use
  Company Number: GB-LEO PHARMA-222230

PATIENT
  Age: 46 Year
  Sex: Male

DRUGS (14)
  1. ANTIBIOTICS [Concomitant]
     Active Substance: UNSPECIFIED INGREDIENT
     Indication: SEPSIS
  2. ANTIBIOTICS (UNKNOWN) [Concomitant]
     Active Substance: UNSPECIFIED INGREDIENT
     Indication: INFECTION
     Route: 042
     Dates: start: 20130625, end: 20130626
  3. FLUCLOXACILLIN [Concomitant]
     Active Substance: FLUCLOXACILLIN
     Indication: INFECTION
     Route: 048
     Dates: start: 20130626, end: 20130701
  4. FLUCLOXACILLIN [Concomitant]
     Active Substance: FLUCLOXACILLIN
     Indication: SEPSIS
  5. FUCIDIN - TOPICAL [Concomitant]
     Indication: SEPSIS
  6. PICATO [Suspect]
     Active Substance: INGENOL MEBUTATE
     Indication: ACTINIC KERATOSIS
     Route: 061
     Dates: start: 20130619, end: 20130619
  7. ANTIBIOTICS [Concomitant]
     Active Substance: UNSPECIFIED INGREDIENT
     Indication: INFECTION
     Route: 042
     Dates: start: 20130624, end: 20130624
  8. FUCIDIN - TOPICAL [Concomitant]
     Indication: INFECTION
     Route: 061
     Dates: start: 20130626
  9. PICATO [Suspect]
     Active Substance: INGENOL MEBUTATE
     Dates: start: 20130623, end: 20130623
  10. FLUCLOXACILLIN [Concomitant]
     Active Substance: FLUCLOXACILLIN
     Indication: INFECTION
     Route: 048
     Dates: start: 20130624, end: 20130625
  11. FLUCLOXACILLIN [Concomitant]
     Active Substance: FLUCLOXACILLIN
     Indication: SEPSIS
  12. FLUCLOXACILLIN [Concomitant]
     Active Substance: FLUCLOXACILLIN
     Indication: SEPSIS
  13. FLUCLOXACILLIN [Concomitant]
     Active Substance: FLUCLOXACILLIN
     Indication: INFECTION
     Route: 048
     Dates: start: 20130701, end: 20130704
  14. ANTIBIOTICS (UNKNOWN) [Concomitant]
     Active Substance: UNSPECIFIED INGREDIENT
     Indication: SEPSIS

REACTIONS (23)
  - Sepsis [Recovered/Resolved]
  - Application site infection [Recovered/Resolved]
  - Vomiting [Recovered/Resolved]
  - Application site scab [Recovered/Resolved]
  - Paraesthesia [Unknown]
  - Hypoaesthesia [Recovered/Resolved]
  - Application site pustules [Recovered/Resolved]
  - Pain in jaw [Recovered/Resolved]
  - Application site pain [Unknown]
  - Wrong technique in product usage process [Unknown]
  - Hypoaesthesia [Unknown]
  - Inappropriate schedule of drug administration [Unknown]
  - Pain in extremity [Unknown]
  - Abdominal pain [Recovered/Resolved]
  - Application site reaction [Recovered/Resolved]
  - Application site erythema [Unknown]
  - Application site swelling [Recovered/Resolved]
  - Eye pain [Recovered/Resolved]
  - Neuralgia [Not Recovered/Not Resolved]
  - Application site vesicles [Recovered/Resolved]
  - Muscle spasms [Unknown]
  - Pain in extremity [Unknown]
  - Incorrect drug administration duration [Unknown]

NARRATIVE: CASE EVENT DATE: 20130619
